FAERS Safety Report 10467672 (Version 2)
Quarter: 2014Q3

REPORT INFORMATION
  Report Type: Spontaneous
  Country: FR (occurrence: FR)
  Receive Date: 20140922
  Receipt Date: 20140922
  Transmission Date: 20150326
  Serious: Yes (Hospitalization)
  Sender: FDA-Public Use
  Company Number: FR-GLAXOSMITHKLINE-B0532807A

PATIENT
  Age: 76 Year
  Sex: Male

DRUGS (10)
  1. ATARAX [Concomitant]
     Active Substance: HYDROXYZINE\HYDROXYZINE HYDROCHLORIDE
     Route: 065
  2. XATRAL [Concomitant]
     Active Substance: ALFUZOSIN
     Route: 065
  3. CORTANCYL [Concomitant]
     Active Substance: PREDNISONE
     Dosage: 20MG PER DAY
     Route: 048
     Dates: start: 200804
  4. PARACETAMOL [Concomitant]
     Active Substance: ACETAMINOPHEN
     Route: 065
  5. MOTILIUM [Concomitant]
     Active Substance: DOMPERIDONE
     Route: 065
  6. TAZOCILLINE [Concomitant]
     Active Substance: PIPERACILLIN SODIUM\TAZOBACTAM SODIUM
     Route: 065
     Dates: start: 20080609
  7. OFLOXACINE [Concomitant]
     Active Substance: OFLOXACIN
     Route: 065
     Dates: start: 20080609
  8. ALKERAN [Suspect]
     Active Substance: MELPHALAN
     Indication: PLASMA CELL MYELOMA
     Dosage: 4MG PER DAY
     Route: 048
     Dates: start: 20080516, end: 20080520
  9. PROPYLTHIOURACIL. [Suspect]
     Active Substance: PROPYLTHIOURACIL
     Indication: PLASMA CELL MYELOMA
     Dosage: 6UNIT PER DAY
     Route: 048
     Dates: start: 20080506
  10. FORLAX [Concomitant]
     Active Substance: POLYETHYLENE GLYCOL 4000
     Route: 065

REACTIONS (3)
  - Pyrexia [Recovered/Resolved]
  - Leukopenia [Recovered/Resolved]
  - Lymphopenia [Recovered/Resolved]

NARRATIVE: CASE EVENT DATE: 20080609
